FAERS Safety Report 5201444-0 (Version None)
Quarter: 2007Q1

REPORT INFORMATION
  Report Type: 
  Country: None (occurrence: None)
  Receive Date: 20070108
  Receipt Date: 20061229
  Transmission Date: 20070707
  Serious: Yes (Disabling, Other)
  Sender: FDA-Public Use
  Company Number: US-PFIZER INC-2007000746

PATIENT
  Sex: Female
  Weight: 74.8 kg

DRUGS (1)
  1. LIPITOR [Suspect]
     Indication: BLOOD CHOLESTEROL INCREASED
     Dates: start: 20030101, end: 20050101

REACTIONS (4)
  - ABASIA [None]
  - DYSPNOEA [None]
  - HEPATIC STEATOSIS [None]
  - MYALGIA [None]
